FAERS Safety Report 7008391-2 (Version None)
Quarter: 2010Q3

REPORT INFORMATION
  Report Type: 
  Country: None (occurrence: None)
  Receive Date: 20100922
  Receipt Date: 20100914
  Transmission Date: 20110219
  Serious: Yes (Hospitalization)
  Sender: FDA-Public Use
  Company Number: B0668733A

PATIENT
  Sex: Male
  Weight: 71 kg

DRUGS (3)
  1. LAPATINIB [Suspect]
     Indication: GASTRIC CANCER
     Dosage: 1250MG PER DAY
     Dates: start: 20100720
  2. OXALIPLATIN [Suspect]
     Indication: GASTRIC CANCER
     Dosage: 240MG EVERY 3 WEEKS
     Route: 042
     Dates: start: 20100720
  3. CAPECITABINE [Suspect]
     Indication: GASTRIC CANCER
     Dosage: 1650MG TWICE PER DAY
     Route: 048
     Dates: start: 20100720, end: 20100803

REACTIONS (3)
  - HYPOKALAEMIA [None]
  - LEUKOPENIA [None]
  - PYREXIA [None]
